FAERS Safety Report 7005401-3 (Version None)
Quarter: 2010Q3

REPORT INFORMATION
  Report Type: 
  Country: None (occurrence: None)
  Receive Date: 20100921
  Receipt Date: 20100909
  Transmission Date: 20110219
  Serious: Yes (Death, Hospitalization)
  Sender: FDA-Public Use
  Company Number: DE-ROCHE-707945

PATIENT
  Age: 80 Year
  Weight: 47 kg

DRUGS (1)
  1. CAPECITABINE [Suspect]
     Indication: PRODUCT USED FOR UNKNOWN INDICATION
     Route: 065
     Dates: start: 20100111, end: 20100120

REACTIONS (3)
  - DEATH [None]
  - PELVIC FRACTURE [None]
  - WRIST FRACTURE [None]
